FAERS Safety Report 8365480-8 (Version None)
Quarter: 2012Q2

REPORT INFORMATION
  Report Type: 
  Country: None (occurrence: None)
  Receive Date: 20120516
  Receipt Date: 20120509
  Transmission Date: 20120825
  Serious: Yes (Other)
  Sender: FDA-Public Use
  Company Number: CHPA2012DE009376

PATIENT
  Age: 72 Year
  Sex: Female

DRUGS (3)
  1. IBUPROFEN TABLETS [Suspect]
     Dosage: 1 DF, QD
     Route: 048
  2. AMLODIPINE BESYLATE [Concomitant]
     Dosage: 10 MG DAILY
  3. IBUPROFEN TABLETS [Suspect]
     Indication: INTERVERTEBRAL DISC PROTRUSION
     Dosage: 2-3 TIMES WEEKLY, PRN
     Route: 048

REACTIONS (3)
  - VISUAL ACUITY REDUCED [None]
  - COLOUR BLINDNESS [None]
  - NIGHT BLINDNESS [None]
